FAERS Safety Report 4475654-4 (Version None)
Quarter: 2004Q4

REPORT INFORMATION
  Report Type: 
  Country: None (occurrence: None)
  Receive Date: 20041012
  Receipt Date: 20040930
  Transmission Date: 20050328
  Serious: Yes (Congenital Anomaly)
  Sender: FDA-Public Use
  Company Number: 235052

PATIENT
  Sex: Male
  Weight: 3.7 kg

DRUGS (3)
  1. INSULIN ASPART [Suspect]
     Indication: DIABETES MELLITUS INSULIN-DEPENDENT
     Dosage: 66 IU, QD INTRAUTERINE
     Route: 064
     Dates: start: 20030701
  2. INSULATARD PENFILL (INSULIN HUMAN) [Concomitant]
  3. GRAVITAMON (VITAMINS NOS) [Concomitant]

REACTIONS (6)
  - DRUG EXPOSURE DURING PREGNANCY [None]
  - FOETAL DISORDER [None]
  - HYDRONEPHROSIS [None]
  - HYPOGLYCAEMIA NEONATAL [None]
  - PYELECTASIA [None]
  - RENAL IMPAIRMENT [None]
